FAERS Safety Report 7708093-0 (Version None)
Quarter: 2011Q3

REPORT INFORMATION
  Report Type: 
  Country: None (occurrence: None)
  Receive Date: 20110825
  Receipt Date: 20110815
  Transmission Date: 20111222
  Serious: Yes (Death)
  Sender: FDA-Public Use
  Company Number: US-BIOGENIDEC-2011BI031496

PATIENT
  Age: 61 Year
  Sex: Female
  Weight: 62 kg

DRUGS (11)
  1. DIPHENHYDRAMINE HCL [Concomitant]
     Route: 048
     Dates: start: 20090908
  2. AMITRIPTYLINE HCL [Concomitant]
     Indication: SLEEP DISORDER
     Route: 048
     Dates: start: 20110101
  3. POTASSIUM CHLORIDE [Concomitant]
     Indication: HYPOCALCAEMIA
     Route: 048
     Dates: start: 20090908
  4. TYSABRI [Suspect]
     Indication: MULTIPLE SCLEROSIS
     Route: 042
     Dates: start: 20071002, end: 20110802
  5. ALPRAZOLAM [Concomitant]
     Indication: ANXIETY
     Route: 048
     Dates: start: 20060516
  6. HYDROCODONE BITARTRATE [Concomitant]
     Indication: PAIN
     Route: 048
  7. ACETAMINOPHEN [Concomitant]
     Indication: PAIN
     Route: 048
  8. MORPHINE SULFATE [Concomitant]
     Indication: PAIN
     Route: 048
     Dates: start: 20081014
  9. LANSOPRAZOLE [Concomitant]
     Indication: PEPTIC ULCER
     Route: 048
     Dates: start: 20051122
  10. ALBUTEROL SULFATE [Concomitant]
  11. VITAMIN D [Concomitant]
     Indication: VITAMIN D DEFICIENCY
     Dates: start: 20090908

REACTIONS (1)
  - SUDDEN DEATH [None]
